FAERS Safety Report 11242872 (Version 1)
Quarter: 2015Q3

REPORT INFORMATION
  Report Type: Spontaneous
  Country: US (occurrence: None)
  Receive Date: 20150702
  Receipt Date: 20150702
  Transmission Date: 20151125
  Serious: Yes (Death)
  Sender: FDA-Public Use
  Company Number: US-2015VAL000424

PATIENT
  Age: 82 Year
  Sex: Male

DRUGS (4)
  1. IMATINIB [Suspect]
     Active Substance: IMATINIB
     Indication: CHRONIC MYELOID LEUKAEMIA
  2. PREDNISONE (PREDNISONE) [Suspect]
     Active Substance: PREDNISONE
     Indication: CHRONIC MYELOID LEUKAEMIA
  3. DOXAZOSIN [Suspect]
     Active Substance: DOXAZOSIN\DOXAZOSIN MESYLATE
     Indication: HYPERTENSION
  4. METOPROLOL TARTRATE (METOPROLOL TARTRATE) UNKNOWN [Suspect]
     Active Substance: METOPROLOL TARTRATE
     Indication: HYPERTENSION

REACTIONS (11)
  - Left atrial dilatation [None]
  - Haematuria [None]
  - Ecchymosis [None]
  - Electrocardiogram T wave abnormal [None]
  - Atrial fibrillation [None]
  - Laboratory test abnormal [None]
  - Cerebral haemorrhage [None]
  - Electrocardiogram ST segment elevation [None]
  - Thrombocytopenia [None]
  - Spleen palpable [None]
  - Liver palpable [None]
